FAERS Safety Report 9820804 (Version 3)
Quarter: 2014Q1

REPORT INFORMATION
  Report Type: Spontaneous
  Country: US (occurrence: US)
  Receive Date: 20140116
  Receipt Date: 20140307
  Transmission Date: 20141002
  Serious: No
  Sender: FDA-Public Use
  Company Number: US-PFIZER INC-2014014697

PATIENT
  Age: 74 Year
  Sex: Male

DRUGS (5)
  1. LYRICA [Suspect]
     Indication: POST HERPETIC NEURALGIA
     Dosage: 75 MG, 2X/DAY
     Dates: start: 20140114
  2. LYRICA [Suspect]
     Dosage: UNK, 1X/DAY
  3. LYRICA [Suspect]
     Dosage: UNK, 2X/DAY
     Dates: end: 20140218
  4. PHENOBARBITAL [Concomitant]
     Indication: CONVULSION
     Dosage: UNK
  5. DILANTIN [Concomitant]
     Indication: CONVULSION
     Dosage: UNK

REACTIONS (4)
  - Somnolence [Recovered/Resolved]
  - Therapeutic response unexpected [Unknown]
  - Middle insomnia [Recovered/Resolved]
  - Intentional drug misuse [Recovered/Resolved]
